FAERS Safety Report 12438264 (Version 1)
Quarter: 2016Q2

REPORT INFORMATION
  Report Type: Report from Study
  Country: BR (occurrence: BR)
  Receive Date: 20160606
  Receipt Date: 20160606
  Transmission Date: 20160815
  Serious: Yes (Death, Hospitalization, Disabling, Other)
  Sender: FDA-Public Use
  Company Number: PHHY2016BR077493

PATIENT
  Age: 81 Year
  Sex: Male
  Weight: 66 kg

DRUGS (1)
  1. ACLASTA [Suspect]
     Active Substance: ZOLEDRONIC ACID
     Indication: PRODUCT USED FOR UNKNOWN INDICATION
     Dosage: 5 MG, UNK
     Route: 065
     Dates: start: 20150529, end: 20150529

REACTIONS (10)
  - Pyrexia [Fatal]
  - Fatigue [Unknown]
  - Emphysema [Fatal]
  - Pneumonia [Fatal]
  - Malaise [Fatal]
  - Scab [Fatal]
  - Pelvic fracture [Fatal]
  - Fall [Unknown]
  - Dyspnoea [Fatal]
  - Device dislocation [Unknown]

NARRATIVE: CASE EVENT DATE: 201507
